FAERS Safety Report 18111173 (Version 1)
Quarter: 2020Q3

REPORT INFORMATION
  Report Type: Spontaneous
  Country: RU (occurrence: RU)
  Receive Date: 20200804
  Receipt Date: 20200804
  Transmission Date: 20201103
  Serious: Yes (Other)
  Sender: FDA-Public Use
  Company Number: RU-GE HEALTHCARE-OMPQ-PR-1510S-2567

PATIENT
  Age: 62 Year
  Sex: Female
  Weight: 87 kg

DRUGS (7)
  1. OMNIPAQUE [Suspect]
     Active Substance: IOHEXOL
     Indication: COMPUTERISED TOMOGRAM
     Dosage: 300 MG (100 ML), ONCE
     Route: 042
     Dates: start: 20150320, end: 20150320
  2. HERCEPTIN [Suspect]
     Active Substance: TRASTUZUMAB
     Dosage: 2MG/KG (174 MG), CYCLIC
     Route: 042
     Dates: start: 20150316, end: 20150316
  3. OMNIPAQUE [Suspect]
     Active Substance: IOHEXOL
     Indication: BREAST CANCER
  4. HERCEPTIN [Suspect]
     Active Substance: TRASTUZUMAB
     Indication: HER2 POSITIVE BREAST CANCER
     Dosage: 4 MG/KG (344 MG), CYCLIC
     Route: 042
     Dates: start: 20141201, end: 20141201
  5. PACLITAXEL. [Concomitant]
     Active Substance: PACLITAXEL
     Indication: BREAST CANCER METASTATIC
     Dosage: 80 MG/M2 (158 MG) ON DAYS 1, 8, AND 15 OF EACH 28?DAY CYCLE
     Route: 042
     Dates: start: 20151201
  6. PACLITAXEL. [Concomitant]
     Active Substance: PACLITAXEL
     Dosage: UNK
     Dates: start: 20150310, end: 20150310
  7. HERCEPTIN [Suspect]
     Active Substance: TRASTUZUMAB
     Dosage: 2MG/KG (174 MG), CYCLIC
     Route: 042
     Dates: start: 20150310, end: 20150310

REACTIONS (1)
  - Angioedema [Recovered/Resolved]

NARRATIVE: CASE EVENT DATE: 20150321
